FAERS Safety Report 7579668-7 (Version None)
Quarter: 2011Q2

REPORT INFORMATION
  Report Type: 
  Country: None (occurrence: None)
  Receive Date: 20110629
  Receipt Date: 20110117
  Transmission Date: 20111010
  Serious: Yes (Other)
  Sender: FDA-Public Use
  Company Number: US-BAYER-201031168NA

PATIENT
  Age: 29 Year
  Sex: Female
  Weight: 90.703 kg

DRUGS (9)
  1. YASMIN [Suspect]
     Indication: MENORRHAGIA
     Dosage: UNK UNK, QD
     Route: 048
     Dates: start: 20040801, end: 20040901
  2. ROBAXIN [Concomitant]
     Dosage: 750 MG, UNK
     Route: 048
     Dates: start: 20080101
  3. CALCIUM CARBONATE [Concomitant]
     Dosage: 500 MG, QD
     Route: 048
     Dates: start: 20080623
  4. NEXIUM [Concomitant]
     Dosage: 40 MG, PRN
     Route: 048
     Dates: start: 20080623
  5. MULTIVIT [Concomitant]
     Dosage: UNK UNK, QD
     Route: 048
     Dates: start: 20080623
  6. VICODIN [Concomitant]
     Indication: HEADACHE
     Dosage: UNK
     Dates: start: 20080101, end: 20110101
  7. YASMIN [Suspect]
     Indication: ORAL CONTRACEPTION
     Dosage: UNK UNK, QD
     Route: 048
     Dates: start: 20060101, end: 20080101
  8. PERCOCET [Concomitant]
     Indication: PAIN
     Dosage: UNK
     Dates: start: 20070101, end: 20080101
  9. PEPCID [Concomitant]
     Dosage: 40 MG, PRN
     Route: 048
     Dates: start: 20080623

REACTIONS (11)
  - SYNCOPE [None]
  - ANXIETY [None]
  - LEUKOENCEPHALOPATHY [None]
  - LOSS OF CONSCIOUSNESS [None]
  - VAGINAL HAEMORRHAGE [None]
  - BRAIN HYPOXIA [None]
  - TRANSIENT ISCHAEMIC ATTACK [None]
  - MEMORY IMPAIRMENT [None]
  - ANAEMIA [None]
  - THROMBOSIS [None]
  - DEPRESSION [None]
